FAERS Safety Report 5221028-8 (Version None)
Quarter: 2007Q1

REPORT INFORMATION
  Report Type: 
  Country: None (occurrence: None)
  Receive Date: 20070126
  Receipt Date: 20070115
  Transmission Date: 20070707
  Serious: Yes (Death, Life-Threatening, Hospitalization)
  Sender: FDA-Public Use
  Company Number: JP-MERCK-0402USA00339

PATIENT
  Age: 0 Day
  Sex: Male
  Weight: 1 kg

DRUGS (1)
  1. INDOCIN [Suspect]
     Indication: OLIGOHYDRAMNIOS
     Route: 064
     Dates: start: 19950421

REACTIONS (9)
  - GASTROINTESTINAL PERFORATION [None]
  - HAEMORRHAGE INTRACRANIAL [None]
  - HYPERKALAEMIA [None]
  - METABOLIC ACIDOSIS [None]
  - NEONATAL ASPHYXIA [None]
  - NEONATAL RESPIRATORY DISTRESS SYNDROME [None]
  - PATENT DUCTUS ARTERIOSUS [None]
  - PREMATURE BABY [None]
  - TACHYCARDIA [None]
